FAERS Safety Report 5508747-0 (Version None)
Quarter: 2007Q4

REPORT INFORMATION
  Report Type: 
  Country: None (occurrence: None)
  Receive Date: 20071105
  Receipt Date: 20070103
  Transmission Date: 20080405
  Serious: Yes (Other)
  Sender: FDA-Public Use
  Company Number: US-CVT-062418

PATIENT
  Age: 80 Year
  Sex: Male

DRUGS (6)
  1. RANEXA [Suspect]
     Indication: ANGINA PECTORIS
     Dosage: 50 MG, BID, ORAL
     Route: 048
     Dates: start: 20061124, end: 20060101
  2. PLAVIX [Suspect]
     Dosage: 75 MG, QD, ORAL
     Route: 048
  3. ASPIRIN [Concomitant]
  4. NITROGLYCERIN [Concomitant]
  5. LIPITOR [Concomitant]
  6. FLOMAX [Concomitant]

REACTIONS (5)
  - HAEMATOCRIT DECREASED [None]
  - HAEMOGLOBIN DECREASED [None]
  - NEUTROPENIA [None]
  - RED BLOOD CELL COUNT DECREASED [None]
  - WHITE BLOOD CELL COUNT DECREASED [None]
